FAERS Safety Report 20396239 (Version 1)
Quarter: 2022Q1

REPORT INFORMATION
  Report Type: Spontaneous
  Country: IN (occurrence: IN)
  Receive Date: 20220130
  Receipt Date: 20220130
  Transmission Date: 20220423
  Serious: Yes (Other)
  Sender: FDA-Public Use
  Company Number: IN-SUN PHARMACEUTICAL INDUSTRIES LTD-2022R1-324881

PATIENT
  Sex: Male

DRUGS (1)
  1. DAPAGLIFLOZIN PROPANEDIOL\METFORMIN HYDROCHLORIDE [Suspect]
     Active Substance: DAPAGLIFLOZIN PROPANEDIOL\METFORMIN HYDROCHLORIDE
     Indication: Product used for unknown indication
     Dosage: UNK (ONCE DAILY)
     Route: 065
     Dates: end: 20220118

REACTIONS (3)
  - Urinary tract infection [Recovering/Resolving]
  - Penile discomfort [Recovering/Resolving]
  - Pruritus genital [Recovering/Resolving]
